FAERS Safety Report 23177961 (Version 1)
Quarter: 2023Q4

REPORT INFORMATION
  Report Type: Report from Study
  Country: CA (occurrence: CA)
  Receive Date: 20231113
  Receipt Date: 20231113
  Transmission Date: 20240110
  Serious: Yes (Other)
  Sender: FDA-Public Use
  Company Number: CA-002147023-NVSC2023CA238468

PATIENT
  Age: 42 Year
  Sex: Female

DRUGS (1)
  1. KESIMPTA [Suspect]
     Active Substance: OFATUMUMAB
     Indication: Relapsing-remitting multiple sclerosis
     Dosage: 1 DOSAGE FORM
     Route: 058
     Dates: start: 20230805

REACTIONS (2)
  - Relapsing-remitting multiple sclerosis [Recovering/Resolving]
  - Condition aggravated [Recovering/Resolving]
